FAERS Safety Report 15131682 (Version 1)
Quarter: 2018Q3

REPORT INFORMATION
  Report Type: Spontaneous
  Country: PL (occurrence: PL)
  Receive Date: 20180711
  Receipt Date: 20180711
  Transmission Date: 20181010
  Serious: Yes (Life-Threatening)
  Sender: FDA-Public Use
  Company Number: PL-FRESENIUS KABI-FK201807517

PATIENT
  Age: 17 Year
  Sex: Male
  Weight: 128 kg

DRUGS (1)
  1. CEFUROXIME 750 MG [Suspect]
     Active Substance: CEFUROXIME
     Indication: PNEUMONIA
     Route: 042
     Dates: start: 20131107, end: 20131109

REACTIONS (1)
  - Dyspnoea [Unknown]

NARRATIVE: CASE EVENT DATE: 20131109
